FAERS Safety Report 4356274-9 (Version None)
Quarter: 2004Q2

REPORT INFORMATION
  Report Type: 
  Country: None (occurrence: None)
  Receive Date: 20040510
  Receipt Date: 20040510
  Transmission Date: 20050107
  Serious: No
  Sender: FDA-Public Use
  Company Number: None

PATIENT
  Sex: Male

DRUGS (1)
  1. ACCUTANE [Suspect]

REACTIONS (2)
  - ODYNOPHAGIA [None]
  - OESOPHAGEAL ULCER [None]
